FAERS Safety Report 24953103 (Version 3)
Quarter: 2025Q1

REPORT INFORMATION
  Report Type: Spontaneous
  Country: US (occurrence: US)
  Receive Date: 20250211
  Receipt Date: 20250225
  Transmission Date: 20250408
  Serious: No
  Sender: BIOGEN
  Company Number: US-BIOGEN-2024BI01286703

PATIENT
  Sex: Female

DRUGS (3)
  1. SKYCLARYS [Suspect]
     Active Substance: OMAVELOXOLONE
     Indication: Friedreich^s ataxia
     Route: 050
     Dates: start: 20240409
  2. SKYCLARYS [Suspect]
     Active Substance: OMAVELOXOLONE
     Route: 050
     Dates: start: 20240423, end: 202409
  3. SKYCLARYS [Suspect]
     Active Substance: OMAVELOXOLONE
     Route: 050

REACTIONS (7)
  - Dizziness [Unknown]
  - Gait disturbance [Unknown]
  - Fall [Recovered/Resolved]
  - Dysstasia [Unknown]
  - Blood glucose increased [Unknown]
  - Mobility decreased [Unknown]
  - Fatigue [Unknown]

NARRATIVE: CASE EVENT DATE: 20240101
